FAERS Safety Report 10202194 (Version 1)
Quarter: 2014Q2

REPORT INFORMATION
  Report Type: Spontaneous
  Country: ES (occurrence: ES)
  Receive Date: 20140528
  Receipt Date: 20140528
  Transmission Date: 20141212
  Serious: Yes (Other)
  Sender: FDA-Public Use
  Company Number: ES-GLAXOSMITHKLINE-B0997605A

PATIENT
  Age: 72 Year
  Sex: Male
  Weight: 70.8 kg

DRUGS (3)
  1. DUODART [Suspect]
     Indication: BENIGN PROSTATIC HYPERPLASIA
     Dosage: 1CAP PER DAY
     Route: 048
     Dates: start: 20130626, end: 20140318
  2. LOVASTATIN [Concomitant]
     Route: 048
     Dates: start: 20120118
  3. OMEPRAZOL [Concomitant]
     Route: 048
     Dates: start: 201401

REACTIONS (2)
  - Breast pain [Recovered/Resolved]
  - Gynaecomastia [Not Recovered/Not Resolved]
